FAERS Safety Report 8080619-X (Version None)
Quarter: 2012Q1

REPORT INFORMATION
  Report Type: 
  Country: None (occurrence: None)
  Receive Date: 20120130
  Receipt Date: 20120123
  Transmission Date: 20120608
  Serious: Yes (Other)
  Sender: FDA-Public Use
  Company Number: US-TEVA-319490USA

PATIENT
  Age: 58 Year
  Sex: Male

DRUGS (2)
  1. MYCOPHENOLIC ACID [Suspect]
     Route: 065
  2. TACROLIMUS [Suspect]
     Route: 065

REACTIONS (12)
  - ASTHENIA [None]
  - CHROMATURIA [None]
  - PANCREATIC CARCINOMA [None]
  - JAUNDICE [None]
  - NAUSEA [None]
  - DIZZINESS [None]
  - BILE DUCT STONE [None]
  - WEIGHT DECREASED [None]
  - FAECES DISCOLOURED [None]
  - FATIGUE [None]
  - PRURITUS [None]
  - ABDOMINAL PAIN UPPER [None]
